FAERS Safety Report 20643755 (Version 1)
Quarter: 2022Q1

REPORT INFORMATION
  Report Type: Spontaneous
  Country: US (occurrence: None)
  Receive Date: 20220328
  Receipt Date: 20220328
  Transmission Date: 20220424
  Serious: Yes (Hospitalization)
  Sender: FDA-Public Use
  Company Number: US-Unichem Pharmaceuticals (USA) Inc-UCM202203-000244

PATIENT
  Age: 17 Year
  Sex: Female

DRUGS (1)
  1. DIVALPROEX SODIUM [Suspect]
     Active Substance: DIVALPROEX SODIUM
     Indication: Overdose
     Dosage: UNKNOWN

REACTIONS (16)
  - Metabolic acidosis [Recovered/Resolved]
  - Respiratory acidosis [Recovered/Resolved]
  - Overdose [Unknown]
  - Depressed level of consciousness [Recovered/Resolved]
  - Hypotension [Recovered/Resolved]
  - Thrombocytopenia [Recovered/Resolved]
  - Drug level increased [Recovered/Resolved]
  - Pancreatitis necrotising [Recovered/Resolved]
  - Pancytopenia [Recovered/Resolved]
  - Coma [Recovered/Resolved]
  - Seizure [Recovered/Resolved]
  - Hyperammonaemia [Recovered/Resolved]
  - Hypernatraemia [Recovered/Resolved]
  - Encephalopathy [Recovered/Resolved]
  - Hyperlactacidaemia [Recovered/Resolved]
  - Anaemia [Recovered/Resolved]
